FAERS Safety Report 10901108 (Version 1)
Quarter: 2015Q1

REPORT INFORMATION
  Report Type: Spontaneous
  Country: US (occurrence: None)
  Receive Date: 20150303
  Receipt Date: 20150303
  Transmission Date: 20150721
  Serious: Yes (Hospitalization)
  Sender: FDA-Public Use
  Company Number: 15AE006

PATIENT
  Age: 12 Year
  Sex: Male

DRUGS (2)
  1. MOTION SICKNESS RELIEF [Suspect]
     Active Substance: MECLIZINE HYDROCHLORIDE
     Indication: DIZZINESS
     Route: 048
     Dates: start: 20150120
  2. MOTION SICKNESS RELIEF [Suspect]
     Active Substance: MECLIZINE HYDROCHLORIDE
     Indication: NAUSEA
     Route: 048
     Dates: start: 20150120

REACTIONS (4)
  - Throat irritation [None]
  - Product formulation issue [None]
  - Hypersensitivity [None]
  - Lactose intolerance [None]

NARRATIVE: CASE EVENT DATE: 20150120
